FAERS Safety Report 19327491 (Version 2)
Quarter: 2021Q2

REPORT INFORMATION
  Report Type: Spontaneous
  Country: US (occurrence: US)
  Receive Date: 20210528
  Receipt Date: 20210609
  Transmission Date: 20210717
  Serious: Yes (Hospitalization)
  Sender: FDA-Public Use
  Company Number: US-GW PHARMA-202105USGW02582

PATIENT

DRUGS (1)
  1. EPIDIOLEX [Suspect]
     Active Substance: CANNABIDIOL
     Indication: LENNOX-GASTAUT SYNDROME
     Dosage: 24.41 MG/KG/DAY, 260 MILLIGRAM, BID (FIRST SHIPPED DATE: 19 SEP 2019)
     Route: 048
     Dates: start: 201909

REACTIONS (4)
  - Neuronal ceroid lipofuscinosis [Unknown]
  - Prescribed overdose [Unknown]
  - Pneumonia [Unknown]
  - Product dose omission issue [Unknown]
